FAERS Safety Report 20989091 (Version 1)
Quarter: 2022Q2

REPORT INFORMATION
  Report Type: Spontaneous
  Country: HU (occurrence: HU)
  Receive Date: 20220621
  Receipt Date: 20220621
  Transmission Date: 20220721
  Serious: Yes (Hospitalization, Other)
  Sender: FDA-Public Use
  Company Number: HU-002147023-NVSC2022HU133439

PATIENT

DRUGS (11)
  1. RUXOLITINIB [Suspect]
     Active Substance: RUXOLITINIB
     Indication: Polycythaemia vera
     Dosage: 15 MG, BID (2X)
     Route: 065
     Dates: start: 201909
  2. RUXOLITINIB [Suspect]
     Active Substance: RUXOLITINIB
     Dosage: 20 MG, BID (2X)
     Route: 065
     Dates: start: 202005
  3. RUXOLITINIB [Suspect]
     Active Substance: RUXOLITINIB
     Dosage: UNK
     Route: 065
  4. RUXOLITINIB [Suspect]
     Active Substance: RUXOLITINIB
     Dosage: 20 MG, BID (2X)
     Route: 065
     Dates: start: 202101
  5. ASPIRIN [Suspect]
     Active Substance: ASPIRIN
     Indication: Erythromelalgia
     Dosage: 100 MG, QD
     Route: 065
     Dates: start: 201307
  6. METOPROLOL [Suspect]
     Active Substance: METOPROLOL
     Indication: Product used for unknown indication
     Dosage: 25 MG, BID (2X)
     Route: 065
  7. PERINDOPRIL [Suspect]
     Active Substance: PERINDOPRIL
     Indication: Product used for unknown indication
     Dosage: 4 MG, BID (2X)
     Route: 065
  8. PEGASYS [Concomitant]
     Active Substance: PEGINTERFERON ALFA-2A
     Indication: Polycythaemia vera
     Dosage: 180 UG, QW
     Route: 065
     Dates: start: 202010, end: 202101
  9. FERROUS SULFATE [Concomitant]
     Active Substance: FERROUS SULFATE
     Indication: Mineral supplementation
     Dosage: 1 DOSAGE FORM, QOD (1 TABLET EVERY OTHER DAY)
     Route: 065
     Dates: start: 201412
  10. LEVOTHYROXINE SODIUM [Concomitant]
     Active Substance: LEVOTHYROXINE SODIUM
     Indication: Product used for unknown indication
     Dosage: 25 UG, QOD (EVERY OTHER DAY)
     Route: 065
  11. HYDROXYUREA [Concomitant]
     Active Substance: HYDROXYUREA
     Indication: Polycythaemia vera
     Dosage: UNK
     Route: 065
     Dates: start: 201904

REACTIONS (34)
  - Product use in unapproved indication [Unknown]
  - COVID-19 [Unknown]
  - Premature menopause [Unknown]
  - Mitral valve incompetence [Unknown]
  - Tricuspid valve incompetence [Unknown]
  - Intracardiac pressure increased [Unknown]
  - Haematocrit increased [Recovered/Resolved]
  - Haematocrit increased [Recovered/Resolved]
  - Haematocrit increased [Recovered/Resolved]
  - Haemoglobin increased [Recovered/Resolved]
  - Haemoglobin increased [Recovered/Resolved]
  - Gene mutation identification test positive [Unknown]
  - Drug ineffective [Unknown]
  - Mean cell volume decreased [Recovered/Resolved]
  - Mean cell volume decreased [Recovered/Resolved]
  - Oral discomfort [Unknown]
  - Malaise [Unknown]
  - Stress [Unknown]
  - Platelet count increased [Recovered/Resolved]
  - Aphthous ulcer [Unknown]
  - Dizziness [Unknown]
  - Eczema [Recovered/Resolved]
  - Palpitations [Unknown]
  - Serum ferritin decreased [Unknown]
  - Rash [Recovered/Resolved]
  - Alopecia [Unknown]
  - Heavy menstrual bleeding [Unknown]
  - Onychoclasis [Unknown]
  - Red blood cell count increased [Recovered/Resolved]
  - Oral disorder [Unknown]
  - Irritability [Unknown]
  - Tinnitus [Unknown]
  - White blood cell count increased [Recovered/Resolved]
  - Haematocrit increased [Unknown]

NARRATIVE: CASE EVENT DATE: 20130808
